FAERS Safety Report 5984678-7 (Version None)
Quarter: 2008Q4

REPORT INFORMATION
  Report Type: 
  Country: None (occurrence: None)
  Receive Date: 20081208
  Receipt Date: 20081202
  Transmission Date: 20090506
  Serious: Yes (Death)
  Sender: FDA-Public Use
  Company Number: US-CELGENEUS-163-21880-08120277

PATIENT
  Sex: Female

DRUGS (3)
  1. REVLIMID [Suspect]
     Indication: MULTIPLE MYELOMA
     Route: 048
     Dates: start: 20081105, end: 20081101
  2. REVLIMID [Suspect]
     Route: 048
     Dates: start: 20070910, end: 20071201
  3. REVLIMID [Suspect]
     Route: 048
     Dates: start: 20080218, end: 20080801

REACTIONS (1)
  - DEATH [None]
